FAERS Safety Report 7677522-3 (Version None)
Quarter: 2011Q3

REPORT INFORMATION
  Report Type: 
  Country: None (occurrence: None)
  Receive Date: 20110810
  Receipt Date: 20110810
  Transmission Date: 20111222
  Serious: Yes (Hospitalization)
  Sender: FDA-Public Use
  Company Number: None

PATIENT
  Sex: Female

DRUGS (1)
  1. TRILEPTAL [Suspect]
     Indication: BIPOLAR DISORDER
     Dosage: 300MG 2X DAILY
     Dates: start: 20040101, end: 20110101

REACTIONS (6)
  - DIZZINESS [None]
  - BLOOD SODIUM DECREASED [None]
  - LOGORRHOEA [None]
  - VISION BLURRED [None]
  - AMNESIA [None]
  - FALL [None]
